FAERS Safety Report 19955113 (Version 1)
Quarter: 2021Q4

REPORT INFORMATION
  Report Type: Spontaneous
  Country: US (occurrence: US)
  Receive Date: 20211014
  Receipt Date: 20211014
  Transmission Date: 20220303
  Serious: Yes (Hospitalization)
  Sender: FDA-Public Use
  Company Number: None

PATIENT
  Sex: Male

DRUGS (11)
  1. HUMIRA [Suspect]
     Active Substance: ADALIMUMAB
     Indication: Rheumatoid arthritis
     Dosage: ?          OTHER FREQUENCY:EVERY OTHER WEEK;
     Route: 058
     Dates: start: 20171110
  2. AMLODIPINE [Concomitant]
     Active Substance: AMLODIPINE BESYLATE
  3. FOLIC ACID [Concomitant]
     Active Substance: FOLIC ACID
  4. HYDROCHLOROTHIAZIDE [Concomitant]
     Active Substance: HYDROCHLOROTHIAZIDE
  5. LEVOTHYROXINE [Concomitant]
     Active Substance: LEVOTHYROXINE
  6. METOPROL SUC [Concomitant]
  7. ONDANSETRON [Concomitant]
     Active Substance: ONDANSETRON
  8. PANTOPRAZOLE [Concomitant]
     Active Substance: PANTOPRAZOLE
  9. PRASUGREL [Concomitant]
     Active Substance: PRASUGREL
  10. RAMIPRIL [Concomitant]
     Active Substance: RAMIPRIL
  11. TRAMDOL HCL [Concomitant]

REACTIONS (2)
  - Cardiac operation [None]
  - Therapy interrupted [None]
